FAERS Safety Report 7097834-4 (Version None)
Quarter: 2010Q4

REPORT INFORMATION
  Report Type: 
  Country: None (occurrence: None)
  Receive Date: 20101112
  Receipt Date: 20101102
  Transmission Date: 20110411
  Serious: Yes (Hospitalization)
  Sender: FDA-Public Use
  Company Number: CA-JNJFOC-20101101526

PATIENT
  Sex: Female
  Weight: 74 kg

DRUGS (10)
  1. REMICADE [Suspect]
     Indication: COLITIS ULCERATIVE
     Route: 042
  2. IMURAN [Concomitant]
     Route: 048
  3. SOLU-CORTEF [Concomitant]
     Route: 042
  4. BIRTH CONTROL PILLS (UNSPECIFIED) [Concomitant]
  5. VITAMIN TAB [Concomitant]
  6. CALCIUM [Concomitant]
  7. VITAMIN D [Concomitant]
  8. MAGNESIUM [Concomitant]
  9. IRON [Concomitant]
  10. CELEXA [Concomitant]

REACTIONS (1)
  - APPENDICITIS [None]
